FAERS Safety Report 6684775-7 (Version None)
Quarter: 2010Q2

REPORT INFORMATION
  Report Type: 
  Country: None (occurrence: None)
  Receive Date: 20100416
  Receipt Date: 20100406
  Transmission Date: 20101027
  Serious: Yes (Other)
  Sender: FDA-Public Use
  Company Number: ES-WATSON-2010-04681

PATIENT
  Age: 41 Year
  Sex: Male

DRUGS (1)
  1. LORAZEPAM [Suspect]
     Indication: SUICIDE ATTEMPT
     Dosage: UNK
     Route: 048

REACTIONS (2)
  - BLISTER [None]
  - COMA [None]
